FAERS Safety Report 6727777-4 (Version None)
Quarter: 2010Q2

REPORT INFORMATION
  Report Type: 
  Country: None (occurrence: None)
  Receive Date: 20100512
  Receipt Date: 20100426
  Transmission Date: 20101027
  Serious: Yes (Hospitalization)
  Sender: FDA-Public Use
  Company Number: 008416

PATIENT
  Sex: Female
  Weight: 85 kg

DRUGS (13)
  1. NEUPRO [Suspect]
     Dosage: (4 MG 1X/24 HOURS)
     Dates: start: 20080101
  2. LEVODOPA [Concomitant]
  3. BISOPROLOL [Concomitant]
  4. PANTOPRAZOLE [Concomitant]
  5. ALLOBETA [Concomitant]
  6. UNKNOWN [Concomitant]
  7. LYRICA [Concomitant]
  8. TRAMADOL HCL [Concomitant]
  9. MADOPAR [Concomitant]
  10. ESIDRIX [Concomitant]
  11. DIPYRONE TAB [Concomitant]
  12. NULYTELY [Concomitant]
  13. CEFPODOXIME PROXETIL [Concomitant]

REACTIONS (12)
  - ARTERIOSCLEROSIS [None]
  - BILE DUCT STONE [None]
  - CONFUSIONAL STATE [None]
  - DEPRESSION [None]
  - HELICOBACTER GASTRITIS [None]
  - HYPERHIDROSIS [None]
  - LEUKOCYTURIA [None]
  - NEPHROLITHIASIS [None]
  - NIGHTMARE [None]
  - RESTLESSNESS [None]
  - SLEEP TALKING [None]
  - URINARY TRACT INFECTION [None]
